FAERS Safety Report 16859315 (Version 8)
Quarter: 2019Q4

REPORT INFORMATION
  Report Type: Report from Study
  Country: None (occurrence: GR)
  Receive Date: 20190926
  Receipt Date: 20191224
  Transmission Date: 20200122
  Serious: Yes (Hospitalization, Other)
  Sender: FDA-Public Use
  Company Number: GR-ABBVIE-19K-066-2939257-00

PATIENT
  Age: 61 Year
  Sex: Male
  Weight: 90 kg

DRUGS (8)
  1. DUODOPA [Suspect]
     Active Substance: CARBIDOPA\LEVODOPA
     Indication: PARKINSON^S DISEASE
     Dosage: CR: 5.4ML/H UNTIL 14:00, CR: 5.6ML/H UNTIL 00:00,CR: 3.5ML/H UNTIL MORNING; ED: 2.5ML
     Route: 050
     Dates: start: 20181214
  2. LOGIMAX [Concomitant]
     Active Substance: FELODIPINE\METOPROLOL SUCCINATE
     Indication: HYPERTENSION
     Dosage: (5+47.5)MG
     Route: 048
  3. MADOPAR [Concomitant]
     Active Substance: BENSERAZIDE HYDROCHLORIDE\LEVODOPA
     Indication: PARKINSON^S DISEASE
     Route: 048
  4. COSYREL [Concomitant]
     Active Substance: BISOPROLOL FUMARATE\PERINDOPRIL ARGININE
     Indication: PRODUCT USED FOR UNKNOWN INDICATION
     Dosage: (10+5)MG
     Route: 048
  5. VITAMIN B12 [Concomitant]
     Active Substance: CYANOCOBALAMIN
     Indication: PRODUCT USED FOR UNKNOWN INDICATION
     Route: 048
     Dates: start: 201908, end: 20190921
  6. DUODOPA [Suspect]
     Active Substance: CARBIDOPA\LEVODOPA
     Dosage: CR: 5.4ML/H UNTIL 14:00, CR: 5.6ML/H UNTIL 00:00, CR 5.5ML/H UNTIL 07:00; ED: 2.5ML
     Route: 050
  7. DUODOPA [Suspect]
     Active Substance: CARBIDOPA\LEVODOPA
     Dosage: CR: 5.0ML/H; EXTRA DOSE: 2.5 ML (THE PUMP OPERATES ON A 24 HOUR BASIS)
     Route: 050
  8. CLONOTRIL [Concomitant]
     Active Substance: CLONAZEPAM
     Indication: PRODUCT USED FOR UNKNOWN INDICATION
     Dates: start: 20190412

REACTIONS (19)
  - Renal failure [Recovered/Resolved]
  - Oxygen saturation decreased [Recovered/Resolved]
  - Decreased appetite [Not Recovered/Not Resolved]
  - Cyst [Not Recovered/Not Resolved]
  - Pulmonary oedema [Recovered/Resolved]
  - Immunoglobulins decreased [Not Recovered/Not Resolved]
  - Decreased appetite [Recovered/Resolved]
  - Secretion discharge [Not Recovered/Not Resolved]
  - Hepatic failure [Recovered/Resolved]
  - Gait inability [Recovered/Resolved]
  - Hypoaesthesia [Recovered/Resolved]
  - Epilepsy [Recovered/Resolved]
  - Burning sensation [Recovered/Resolved]
  - Hepatic function abnormal [Recovered/Resolved]
  - Renal impairment [Recovered/Resolved]
  - Vomiting [Recovered/Resolved]
  - Sensory loss [Not Recovered/Not Resolved]
  - Speech disorder [Recovered/Resolved]
  - Haematocrit decreased [Not Recovered/Not Resolved]

NARRATIVE: CASE EVENT DATE: 201908
